FAERS Safety Report 6541891-8 (Version None)
Quarter: 2010Q1

REPORT INFORMATION
  Report Type: 
  Country: None (occurrence: None)
  Receive Date: 20100119
  Receipt Date: 20100113
  Transmission Date: 20100710
  Serious: Yes (Hospitalization, Other)
  Sender: FDA-Public Use
  Company Number: US-RB-000696-10

PATIENT

DRUGS (1)
  1. SUBOXONE [Suspect]
     Dosage: DOSING DETAILS UNKNOWN
     Route: 064
     Dates: end: 20090605

REACTIONS (3)
  - DRUG EXPOSURE DURING PREGNANCY [None]
  - MITOCHONDRIAL CYTOPATHY [None]
  - PREMATURE BABY [None]
